FAERS Safety Report 22065356 (Version 2)
Quarter: 2023Q2

REPORT INFORMATION
  Report Type: Spontaneous
  Country: US (occurrence: US)
  Receive Date: 20230306
  Receipt Date: 20230401
  Transmission Date: 20230721
  Serious: No
  Sender: FDA-Public Use
  Company Number: US-SANOFI-01515192

PATIENT
  Age: 81 Year
  Sex: Female
  Weight: 198 kg

DRUGS (1)
  1. LANTUS SOLOSTAR [Suspect]
     Active Substance: INSULIN GLARGINE
     Indication: Diabetes mellitus
     Dosage: 40 IU, Q12H
     Dates: start: 2017, end: 20230301

REACTIONS (1)
  - Inappropriate schedule of product administration [Unknown]
